FAERS Safety Report 8053453 (Version 2)
Quarter: 2012Q4

REPORT INFORMATION
  Report Type: Report from Study
  Country: FR (occurrence: FR)
  Receive Date: 20110725
  Receipt Date: 20120906
  Transmission Date: 20130627
  Serious: Yes (Other)
  Sender: FDA-Public Use
  Company Number: PHHY2011FR62278

PATIENT

DRUGS (1)
  1. EVEROLIMUS [Suspect]
     Indication: RENAL CANCER METASTATIC
     Dates: start: 20110513

REACTIONS (2)
  - Onycholysis [Not Recovered/Not Resolved]
  - Paronychia [Not Recovered/Not Resolved]
